FAERS Safety Report 7274462-9 (Version None)
Quarter: 2011Q1

REPORT INFORMATION
  Report Type: 
  Country: None (occurrence: None)
  Receive Date: 20110204
  Receipt Date: 20110131
  Transmission Date: 20110831
  Serious: No
  Sender: FDA-Public Use
  Company Number: US-PFIZER INC-2009224968

PATIENT
  Sex: Male
  Weight: 77.098 kg

DRUGS (2)
  1. CHANTIX [Suspect]
     Indication: SMOKING CESSATION THERAPY
     Dosage: 0.5 MG, 1X/DAY
     Dates: start: 20090426
  2. CHANTIX [Suspect]
     Dosage: UNK
     Dates: start: 20090426, end: 20090707

REACTIONS (3)
  - DYSGEUSIA [None]
  - NIGHTMARE [None]
  - TOBACCO WITHDRAWAL SYMPTOMS [None]
